FAERS Safety Report 16007011 (Version 1)
Quarter: 2019Q1

REPORT INFORMATION
  Report Type: Spontaneous
  Country: JP (occurrence: JP)
  Receive Date: 20190226
  Receipt Date: 20190226
  Transmission Date: 20190418
  Serious: Yes (Other)
  Sender: FDA-Public Use
  Company Number: JP-PFIZER INC-2019076578

PATIENT
  Age: 92 Year

DRUGS (3)
  1. ALDACTONE A 25MG [Suspect]
     Active Substance: SPIRONOLACTONE
     Indication: BLOOD POTASSIUM ABNORMAL
  2. ALDACTONE A 25MG [Suspect]
     Active Substance: SPIRONOLACTONE
     Indication: OEDEMA
     Dosage: 25 MG, UNK
  3. ALDACTONE A 25MG [Suspect]
     Active Substance: SPIRONOLACTONE
     Indication: FACE OEDEMA

REACTIONS (1)
  - Blood potassium decreased [Unknown]
